FAERS Safety Report 12412258 (Version 5)
Quarter: 2017Q1

REPORT INFORMATION
  Report Type: Spontaneous
  Country: FR (occurrence: FR)
  Receive Date: 20160527
  Receipt Date: 20170330
  Transmission Date: 20170428
  Serious: Yes (Disabling, Other)
  Sender: FDA-Public Use
  Company Number: FR-ABBVIE-16P-056-1637070-00

PATIENT
  Sex: Male

DRUGS (1)
  1. DEPAKINE [Suspect]
     Active Substance: VALPROATE SODIUM
     Indication: MATERNAL EXPOSURE TIMING UNSPECIFIED
     Route: 064

REACTIONS (21)
  - Foot deformity [Unknown]
  - Dysmorphism [Unknown]
  - Speech disorder developmental [Unknown]
  - Developmental delay [Unknown]
  - Anxiety [Unknown]
  - Auditory disorder [Unknown]
  - Disability [Not Recovered/Not Resolved]
  - Dyskinesia [Unknown]
  - Anger [Unknown]
  - Asphyxia [Not Recovered/Not Resolved]
  - Hypotonia [Unknown]
  - Knee deformity [Unknown]
  - Gait disturbance [Recovered/Resolved]
  - Abnormal behaviour [Unknown]
  - Intentional self-injury [Unknown]
  - Autism [Not Recovered/Not Resolved]
  - Sleep disorder [Unknown]
  - Mastication disorder [Not Recovered/Not Resolved]
  - Foetal exposure during pregnancy [Unknown]
  - Ill-defined disorder [Unknown]
  - Nervous system disorder [Not Recovered/Not Resolved]
